FAERS Safety Report 8202608-4 (Version None)
Quarter: 2012Q1

REPORT INFORMATION
  Report Type: 
  Country: None (occurrence: None)
  Receive Date: 20120312
  Receipt Date: 20120301
  Transmission Date: 20120608
  Serious: Yes (Other)
  Sender: FDA-Public Use
  Company Number: US-JNJFOC-20120301989

PATIENT
  Sex: Male
  Weight: 81.65 kg

DRUGS (2)
  1. VISINE II EYE DROPS [Suspect]
     Route: 048
  2. VISINE II EYE DROPS [Suspect]
     Indication: ACCIDENTAL EXPOSURE
     Dosage: TWO OR THREE YEARS AGO
     Route: 048

REACTIONS (3)
  - ACCIDENTAL EXPOSURE [None]
  - DIARRHOEA [None]
  - DIZZINESS [None]
